FAERS Safety Report 21871428 (Version 1)
Quarter: 2023Q1

REPORT INFORMATION
  Report Type: Spontaneous
  Country: US (occurrence: US)
  Receive Date: 20230117
  Receipt Date: 20230117
  Transmission Date: 20230418
  Serious: Yes (Other)
  Sender: FDA-Public Use
  Company Number: US-SA-SAC20230116001313

PATIENT
  Age: 75 Year
  Sex: Female
  Weight: 118.8 kg

DRUGS (3)
  1. DUPIXENT [Suspect]
     Active Substance: DUPILUMAB
     Indication: Asthma
     Dosage: 300 MG, QOW
     Route: 058
     Dates: start: 202209
  2. PREDNISONE [Concomitant]
     Active Substance: PREDNISONE
     Indication: Wheezing
  3. PREDNISONE [Concomitant]
     Active Substance: PREDNISONE
     Indication: Cough

REACTIONS (2)
  - Pulmonary hypertension [Not Recovered/Not Resolved]
  - Drug ineffective [Unknown]
